FAERS Safety Report 8010210-2 (Version None)
Quarter: 2011Q4

REPORT INFORMATION
  Report Type: 
  Country: None (occurrence: None)
  Receive Date: 20111228
  Receipt Date: 20111209
  Transmission Date: 20120403
  Serious: No
  Sender: FDA-Public Use
  Company Number: PHHY2011JP91217

PATIENT
  Sex: Male
  Weight: 75 kg

DRUGS (10)
  1. LOXONIN [Concomitant]
     Dosage: UNK UKN, UNK
  2. NEORAL [Suspect]
     Dosage: 100 MG/DAY
     Route: 048
     Dates: start: 20100827, end: 20101001
  3. REMICADE [Concomitant]
     Dosage: 5 MG/KG,
  4. SELBEX [Concomitant]
     Dosage: UNK UKN, UNK
  5. NEORAL [Suspect]
     Dosage: 300 MG/DAY
     Dates: start: 20101015
  6. EPINASTINE HYDROCHLORIDE [Concomitant]
     Dosage: UNK UKN, UNK
  7. NEORAL [Suspect]
     Dosage: 150 MG/DAY
     Dates: start: 20100910
  8. CORTICOSTEROIDS [Concomitant]
     Dosage: UNK UKN, UNK
  9. NEORAL [Suspect]
     Indication: PSORIATIC ARTHROPATHY
     Dosage: 100 MG/DAY
     Route: 048
     Dates: start: 20000101, end: 20100701
  10. NEORAL [Suspect]
     Dosage: 200 MG/DAY
     Route: 048
     Dates: start: 20100716, end: 20100820

REACTIONS (5)
  - RASH [None]
  - ARTHRALGIA [None]
  - JOINT SWELLING [None]
  - GAIT DISTURBANCE [None]
  - RENAL DISORDER [None]
